FAERS Safety Report 25875677 (Version 1)
Quarter: 2025Q4

REPORT INFORMATION
  Report Type: Other
  Country: JP (occurrence: JP)
  Receive Date: 20251003
  Receipt Date: 20251003
  Transmission Date: 20260118
  Serious: Yes (Other)
  Sender: NOVITIUM PHARMA
  Company Number: JP-NOVITIUM PHARMA-000010

PATIENT
  Age: 21 Year
  Sex: Female

DRUGS (3)
  1. CLARITHROMYCIN [Suspect]
     Active Substance: CLARITHROMYCIN
     Indication: Dental care
  2. REBAMIPIDE [Concomitant]
     Active Substance: REBAMIPIDE
     Indication: Dental care
  3. MEFENAMIC ACID [Concomitant]
     Active Substance: MEFENAMIC ACID
     Indication: Dental care

REACTIONS (3)
  - Erythema multiforme [Recovered/Resolved]
  - Drug-induced liver injury [Recovering/Resolving]
  - Hypersensitivity [Recovered/Resolved]
